FAERS Safety Report 5976800-3 (Version None)
Quarter: 2008Q4

REPORT INFORMATION
  Report Type: 
  Country: None (occurrence: None)
  Receive Date: 20081203
  Receipt Date: 20080213
  Transmission Date: 20090506
  Serious: No
  Sender: FDA-Public Use
  Company Number: US-AMGEN-KDL265303

PATIENT
  Sex: Female

DRUGS (2)
  1. ENBREL [Suspect]
     Indication: RHEUMATOID ARTHRITIS
     Route: 058
     Dates: start: 20061201
  2. UNSPECIFIED HOMEOPATHIC [Concomitant]

REACTIONS (8)
  - ARTHRALGIA [None]
  - BLOOD URIC ACID INCREASED [None]
  - HEADACHE [None]
  - JOINT STIFFNESS [None]
  - MUSCULOSKELETAL STIFFNESS [None]
  - PAIN IN EXTREMITY [None]
  - RHINORRHOEA [None]
  - WEIGHT INCREASED [None]
